FAERS Safety Report 20492796 (Version 1)
Quarter: 2022Q1

REPORT INFORMATION
  Report Type: Spontaneous
  Country: US (occurrence: None)
  Receive Date: 20220219
  Receipt Date: 20220219
  Transmission Date: 20220423
  Serious: No
  Sender: FDA-Public Use
  Company Number: 2022A009054

PATIENT
  Age: 24136 Day
  Sex: Male
  Weight: 79.4 kg

DRUGS (2)
  1. BYDUREON BCISE [Suspect]
     Active Substance: EXENATIDE
     Indication: Type 2 diabetes mellitus
     Route: 065
     Dates: start: 202110
  2. BYDUREON [Suspect]
     Active Substance: EXENATIDE
     Indication: Type 2 diabetes mellitus
     Route: 065

REACTIONS (5)
  - Injection site haemorrhage [Unknown]
  - Incorrect dose administered by device [Unknown]
  - Device malfunction [Unknown]
  - Needle issue [Unknown]
  - Device leakage [Unknown]

NARRATIVE: CASE EVENT DATE: 20211011
